FAERS Safety Report 10066856 (Version 1)
Quarter: 2014Q2

REPORT INFORMATION
  Report Type: Spontaneous
  Country: US (occurrence: US)
  Receive Date: 20140408
  Receipt Date: 20140408
  Transmission Date: 20141212
  Serious: Yes (Other)
  Sender: FDA-Public Use
  Company Number: US-MYLANLABS-2014S1007640

PATIENT
  Age: 24 Year
  Sex: Male

DRUGS (6)
  1. EPINEPHRINE [Suspect]
     Route: 045
  2. PROCARDIA /00340701/ [Suspect]
     Indication: HYPERTENSION
  3. PHENYLEPHRINE [Suspect]
     Route: 061
  4. NITROUS OXIDE [Suspect]
     Indication: ANAESTHESIA
  5. FORANE [Concomitant]
  6. LIDOCAINE [Concomitant]

REACTIONS (4)
  - Cardiopulmonary failure [Unknown]
  - Hypertension [Unknown]
  - Pulmonary oedema [Unknown]
  - Hypotension [Unknown]
